FAERS Safety Report 24247200 (Version 1)
Quarter: 2024Q3

REPORT INFORMATION
  Report Type: Spontaneous
  Country: US (occurrence: US)
  Receive Date: 20240826
  Receipt Date: 20240826
  Transmission Date: 20241017
  Serious: Yes (Other)
  Sender: AUROBINDO
  Company Number: US-AUROBINDO-AUR-APL-2024-040936

PATIENT
  Age: 28 Year
  Sex: Male

DRUGS (18)
  1. DEXAMETHASONE [Suspect]
     Active Substance: DEXAMETHASONE
     Indication: B-cell type acute leukaemia
     Dosage: UNK
     Route: 065
  2. METHOTREXATE [Suspect]
     Active Substance: METHOTREXATE
     Indication: B-cell type acute leukaemia
     Dosage: UNK
     Route: 065
  3. DECITABINE [Suspect]
     Active Substance: DECITABINE
     Indication: B-cell type acute leukaemia
     Dosage: UNK
     Route: 065
  4. ASCIMINIB [Suspect]
     Active Substance: ASCIMINIB
     Indication: B-cell type acute leukaemia
     Dosage: UNK
     Route: 065
  5. VINCRISTINE SULFATE [Suspect]
     Active Substance: VINCRISTINE SULFATE
     Indication: B-cell type acute leukaemia
     Dosage: UNK
     Route: 065
  6. ASPARAGINASE [Suspect]
     Active Substance: ASPARAGINASE
     Indication: B-cell type acute leukaemia
     Dosage: UNK
     Route: 065
  7. CLADRIBINE [Suspect]
     Active Substance: CLADRIBINE
     Indication: B-cell type acute leukaemia
     Dosage: UNK
     Route: 065
  8. CYTARABINE [Suspect]
     Active Substance: CYTARABINE
     Indication: B-cell type acute leukaemia
     Dosage: UNK
     Route: 065
  9. DASATINIB [Suspect]
     Active Substance: DASATINIB
     Indication: B-cell type acute leukaemia
     Dosage: UNK
     Route: 065
  10. ETOPOSIDE [Suspect]
     Active Substance: ETOPOSIDE
     Indication: B-cell type acute leukaemia
     Dosage: UNK
     Route: 065
  11. IFOSFAMIDE [Suspect]
     Active Substance: IFOSFAMIDE
     Indication: B-cell type acute leukaemia
     Dosage: UNK
     Route: 065
  12. NILOTINIB [Suspect]
     Active Substance: NILOTINIB
     Indication: B-cell type acute leukaemia
     Dosage: UNK
     Route: 065
  13. PONATINIB [Suspect]
     Active Substance: PONATINIB
     Indication: B-cell type acute leukaemia
     Dosage: UNK
     Route: 065
  14. CARMUSTINE [Concomitant]
     Active Substance: CARMUSTINE
     Indication: B-cell type acute leukaemia
     Dosage: UNK
     Route: 065
  15. CYTOXAN [Concomitant]
     Active Substance: CYCLOPHOSPHAMIDE
     Indication: B-cell type acute leukaemia
     Dosage: UNK
     Route: 065
  16. DOXORUBICIN HYDROCHLORIDE [Concomitant]
     Active Substance: DOXORUBICIN HYDROCHLORIDE
     Indication: B-cell type acute leukaemia
     Dosage: UNK
     Route: 065
  17. MERCAPTOPURINE [Concomitant]
     Active Substance: MERCAPTOPURINE
     Indication: B-cell type acute leukaemia
     Dosage: UNK
     Route: 065
  18. VENETOCLAX [Suspect]
     Active Substance: VENETOCLAX

REACTIONS (1)
  - Drug ineffective [Unknown]
